FAERS Safety Report 18613565 (Version 1)
Quarter: 2020Q4

REPORT INFORMATION
  Report Type: Spontaneous
  Country: BR (occurrence: BR)
  Receive Date: 20201214
  Receipt Date: 20201214
  Transmission Date: 20210114
  Serious: Yes (Other)
  Sender: FDA-Public Use
  Company Number: BR-US-PROVELL PHARMACEUTICALS LLC-9203855

PATIENT
  Sex: Male

DRUGS (1)
  1. EUTHYROX [Suspect]
     Active Substance: LEVOTHYROXINE SODIUM
     Indication: HYPOTHYROIDISM
     Dosage: MANUFACTURING DATE: AUG 2018
     Route: 048
     Dates: start: 201909

REACTIONS (9)
  - Panic reaction [Unknown]
  - Dizziness [Unknown]
  - Anxiety [Unknown]
  - Multiple sclerosis [Unknown]
  - Hyperthyroidism [Unknown]
  - Tri-iodothyronine increased [Unknown]
  - Tachycardia [Unknown]
  - Thyroxine increased [Unknown]
  - Arrhythmia [Unknown]

NARRATIVE: CASE EVENT DATE: 2020
